FAERS Safety Report 5053921-3 (Version None)
Quarter: 2006Q3

REPORT INFORMATION
  Report Type: 
  Country: None (occurrence: None)
  Receive Date: 20060712
  Receipt Date: 20060625
  Transmission Date: 20061208
  Serious: Yes (Death)
  Sender: FDA-Public Use
  Company Number: IL200606005256

PATIENT
  Age: 86 Year
  Sex: Female

DRUGS (4)
  1. FORTEO [Suspect]
     Indication: OSTEOPOROSIS
     Dosage: 20, DAILY (1/D), SUBCUTANEOUS
     Route: 058
     Dates: start: 20051006, end: 20051104
  2. FORTEO PEN (FORTEO PEN) [Concomitant]
  3. LERCANIDIPINE [Concomitant]
  4. CALCIUM D3 (CALCIUM, COLECALCIFEROL) [Concomitant]

REACTIONS (2)
  - LUNG ADENOCARCINOMA [None]
  - TREATMENT NONCOMPLIANCE [None]
